FAERS Safety Report 18335051 (Version 1)
Quarter: 2020Q4

REPORT INFORMATION
  Report Type: Spontaneous
  Country: CA (occurrence: CA)
  Receive Date: 20201001
  Receipt Date: 20201001
  Transmission Date: 20210113
  Serious: Yes (Other)
  Sender: FDA-Public Use
  Company Number: CA-AKCEA THERAPEUTICS-2020IS001158

PATIENT
  Age: 33 Year
  Sex: Male
  Weight: 105.23 kg

DRUGS (7)
  1. TEA, GREEN [Concomitant]
     Active Substance: GREEN TEA LEAF
     Route: 048
  2. PRILOSEC [Concomitant]
     Active Substance: OMEPRAZOLE MAGNESIUM
     Route: 065
     Dates: start: 201712
  3. TEGSEDI [Suspect]
     Active Substance: INOTERSEN SODIUM
     Indication: HEREDITARY NEUROPATHIC AMYLOIDOSIS
     Route: 058
     Dates: start: 20190227
  4. GRAVOL [Suspect]
     Active Substance: DIMENHYDRINATE
     Route: 065
  5. DIFLUNISAL. [Concomitant]
     Active Substance: DIFLUNISAL
     Route: 048
  6. VITAMIN A /00056001/ [Concomitant]
     Active Substance: RETINOL
     Route: 065
  7. ISSD (INTEGRATED SYRINGE SAFETY DEVICE) [Suspect]
     Active Substance: DEVICE

REACTIONS (10)
  - Nucleated red cells [Recovered/Resolved]
  - Somnolence [Not Recovered/Not Resolved]
  - Splenomegaly [Not Recovered/Not Resolved]
  - Fatigue [Not Recovered/Not Resolved]
  - Platelet count decreased [Recovered/Resolved]
  - Prealbumin decreased [Unknown]
  - Vitamin A decreased [Not Recovered/Not Resolved]
  - Nausea [Not Recovered/Not Resolved]
  - Urticaria [Recovered/Resolved]
  - Blood creatine phosphokinase increased [Unknown]

NARRATIVE: CASE EVENT DATE: 20190611
